FAERS Safety Report 25204563 (Version 1)
Quarter: 2025Q2

REPORT INFORMATION
  Report Type: Spontaneous
  Country: ZA (occurrence: ZA)
  Receive Date: 20250416
  Receipt Date: 20250416
  Transmission Date: 20250717
  Serious: Yes (Other)
  Sender: BRISTOL-MYERS SQUIBB COMPANY
  Company Number: ZA-BRISTOL-MYERS SQUIBB COMPANY-2025-056046

PATIENT
  Sex: Male

DRUGS (6)
  1. ELIQUIS [Suspect]
     Active Substance: APIXABAN
     Indication: Product used for unknown indication
  2. CARDURA XL [Suspect]
     Active Substance: DOXAZOSIN MESYLATE
     Indication: Product used for unknown indication
  3. DIETARY SUPPLEMENT [Suspect]
     Active Substance: DIETARY SUPPLEMENT
     Indication: Product used for unknown indication
  4. MIRTAZAPINE [Suspect]
     Active Substance: MIRTAZAPINE
     Indication: Product used for unknown indication
  5. VORTIOXETINE HYDROBROMIDE [Suspect]
     Active Substance: VORTIOXETINE HYDROBROMIDE
     Indication: Product used for unknown indication
  6. MEMANTINE HYDROCHLORIDE [Suspect]
     Active Substance: MEMANTINE HYDROCHLORIDE
     Indication: Product used for unknown indication

REACTIONS (11)
  - Haemoglobin decreased [Unknown]
  - Prostatic specific antigen increased [Unknown]
  - Red blood cell count decreased [Unknown]
  - Blood chloride increased [Unknown]
  - Carbon dioxide decreased [Unknown]
  - Haematocrit decreased [Unknown]
  - Mitral valve calcification [Unknown]
  - Aortic valve incompetence [Unknown]
  - Left atrial dilatation [Unknown]
  - Mitral valve incompetence [Unknown]
  - Left ventricular failure [Unknown]

NARRATIVE: CASE EVENT DATE: 20250301
